FAERS Safety Report 25427589 (Version 1)
Quarter: 2025Q2

REPORT INFORMATION
  Report Type: Spontaneous
  Country: US (occurrence: US)
  Receive Date: 20250612
  Receipt Date: 20250612
  Transmission Date: 20250717
  Serious: No
  Sender: TOLMAR
  Company Number: US-Tolmar-TLM-2025-01076

PATIENT
  Age: 72 Year
  Sex: Male
  Weight: 70.307 kg

DRUGS (13)
  1. ELIGARD [Suspect]
     Active Substance: LEUPROLIDE ACETATE
     Indication: Prostate cancer
     Dosage: PATIENT BEEN ON ELIGARD FOR 5 YEARS, SINCE MAY OF 2020. FIRST COUPLE OF YEARS USING THE 6 MONTH SUB-
     Route: 058
  2. ELIGARD [Suspect]
     Active Substance: LEUPROLIDE ACETATE
     Dosage: PATIENT BEEN ON ELIGARD FOR 5 YEARS, SINCE MAY OF 2020. FIRST COUPLE OF YEARS USING THE 6 MONTH SUB-
     Route: 058
     Dates: start: 20250422
  3. DEVICE [Suspect]
     Active Substance: DEVICE
     Indication: Prostate cancer
     Route: 058
  4. ELIGARD [Suspect]
     Active Substance: LEUPROLIDE ACETATE
     Indication: Prostate cancer
     Dates: start: 202005
  5. PREDNISONE [Concomitant]
     Active Substance: PREDNISONE
     Indication: Product used for unknown indication
  6. CRESTOR [Concomitant]
     Active Substance: ROSUVASTATIN CALCIUM
     Indication: Product used for unknown indication
  7. NORVASC [Concomitant]
     Active Substance: AMLODIPINE BESYLATE
     Indication: Product used for unknown indication
  8. FLOMAX [Concomitant]
     Active Substance: TAMSULOSIN HYDROCHLORIDE
     Indication: Product used for unknown indication
  9. JANUMET XR [Concomitant]
     Active Substance: METFORMIN HYDROCHLORIDE\SITAGLIPTIN PHOSPHATE
     Indication: Diabetes mellitus
  10. ASPIRIN [Concomitant]
     Active Substance: ASPIRIN
     Indication: Product used for unknown indication
  11. CALTRATE WITH VITAMIN D [Concomitant]
     Active Substance: CALCIUM CARBONATE\CHOLECALCIFEROL
     Indication: Product used for unknown indication
  12. LATANOPROST [Concomitant]
     Active Substance: LATANOPROST
     Indication: Product used for unknown indication
     Route: 047
  13. CABAZITAXEL [Concomitant]
     Active Substance: CABAZITAXEL
     Indication: Prostate cancer
     Dosage: CABAZITAXEL (CHEMOTHERAPY) INFUSION EVERY 4 WEEKS

REACTIONS (1)
  - Product preparation error [Unknown]

NARRATIVE: CASE EVENT DATE: 20250422
